FAERS Safety Report 19461234 (Version 1)
Quarter: 2021Q2

REPORT INFORMATION
  Report Type: Report from Study
  Country: IT (occurrence: IT)
  Receive Date: 20210625
  Receipt Date: 20210625
  Transmission Date: 20210717
  Serious: Yes (Other)
  Sender: FDA-Public Use
  Company Number: IT-TEVA-2021-IT-1925473

PATIENT
  Age: 69 Year
  Sex: Male
  Weight: 69 kg

DRUGS (4)
  1. GEMSOL [Suspect]
     Active Substance: GEMCITABINE HYDROCHLORIDE
     Indication: BLADDER TRANSITIONAL CELL CARCINOMA
     Dosage: 1800 MG
     Route: 042
     Dates: start: 20210416
  2. CISPLATINO TEVA ITALIA 1 MG/ML CONCENTRATO PER SOLUZIONE PER INFUSIONE [Suspect]
     Active Substance: CISPLATIN
     Indication: BLADDER TRANSITIONAL CELL CARCINOMA
     Dosage: 126 MG
     Dates: start: 20210416
  3. GRANISETRON HIKMA, CONCENTRATO PER SOLUZIONE PER INFUSIONE, 1 MG/ML [Concomitant]
     Indication: PREMEDICATION
     Dosage: 3 MG
     Route: 042
  4. SOLDESAM [Concomitant]
     Active Substance: DEXAMETHASONE
     Indication: PREMEDICATION
     Dosage: 8 MG
     Route: 042

REACTIONS (2)
  - Neutropenia [Recovering/Resolving]
  - Deep vein thrombosis [Recovering/Resolving]

NARRATIVE: CASE EVENT DATE: 20210509
